FAERS Safety Report 13952677 (Version 1)
Quarter: 2017Q3

REPORT INFORMATION
  Report Type: Spontaneous
  Country: BR (occurrence: BR)
  Receive Date: 20170911
  Receipt Date: 20170911
  Transmission Date: 20171128
  Serious: Yes (Other)
  Sender: FDA-Public Use
  Company Number: BR-009507513-1709BRA003218

PATIENT
  Age: 71 Year
  Sex: Male
  Weight: 71 kg

DRUGS (6)
  1. EZETIMIBE AND SIMVASTATIN [Suspect]
     Active Substance: EZETIMIBE\SIMVASTATIN
     Dosage: 1 TABELT IN THE EVENING
     Route: 048
  2. CEBRALAT [Concomitant]
     Active Substance: CILOSTAZOL
     Dosage: UNK UNK, BID
     Route: 048
  3. BISOPROLOL FUMARATE (+) HYDROCHLOROTHIAZIDE [Concomitant]
     Dosage: UNK UNK, BID (QAM AND QPM O THE PRESSURE)
     Route: 048
  4. EZETIMIBE AND SIMVASTATIN [Suspect]
     Active Substance: EZETIMIBE\SIMVASTATIN
     Dosage: 1 TABELT IN THE EVENING
     Route: 048
  5. SOMALGIN [Concomitant]
     Active Substance: ASPIRIN\DIHYDROXYALUMINUM AMINOACETATE ANHYDROUS\MAGNESIUM CARBONATE
     Dosage: 100 MG, AFTER LUNCH
     Route: 048
  6. GLIFAGE [Concomitant]
     Active Substance: METFORMIN HYDROCHLORIDE
     Dosage: 750 MG, AT NIGHT
     Route: 048

REACTIONS (4)
  - Fatigue [Unknown]
  - Heart rate increased [Not Recovered/Not Resolved]
  - Arterial disorder [Not Recovered/Not Resolved]
  - Arterial catheterisation [Recovered/Resolved]

NARRATIVE: CASE EVENT DATE: 20170606
